FAERS Safety Report 9932896 (Version 1)
Quarter: 2014Q1

REPORT INFORMATION
  Report Type: Spontaneous
  Country: US (occurrence: US)
  Receive Date: 20140228
  Receipt Date: 20140228
  Transmission Date: 20141002
  Serious: No
  Sender: FDA-Public Use
  Company Number: US-GLAXOSMITHKLINE-A1038314A

PATIENT
  Age: 51 Year
  Sex: Female

DRUGS (3)
  1. LAMICTAL [Suspect]
     Indication: MOOD SWINGS
     Dosage: 150MG TWICE PER DAY
     Route: 048
     Dates: start: 2010
  2. VITAMIN SUPPLEMENTS [Concomitant]
  3. LORAZEPAM [Concomitant]

REACTIONS (3)
  - Dry mouth [Not Recovered/Not Resolved]
  - Dry eye [Not Recovered/Not Resolved]
  - Drug ineffective [Not Recovered/Not Resolved]
